FAERS Safety Report 7491866-X (Version None)
Quarter: 2011Q2

REPORT INFORMATION
  Report Type: 
  Country: None (occurrence: None)
  Receive Date: 20110512
  Receipt Date: 20110426
  Transmission Date: 20111010
  Serious: Yes (Other)
  Sender: FDA-Public Use
  Company Number: JPI-P-014740

PATIENT
  Age: 50 Year
  Sex: Female
  Weight: 86.1834 kg

DRUGS (2)
  1. XYREM [Suspect]
     Indication: INSOMNIA
     Dosage: ,ORAL, 9 GM (4.5 GM,2 IN 1 D),ORAL
     Route: 048
     Dates: end: 20110401
  2. XYREM [Suspect]
     Indication: INSOMNIA
     Dosage: ,ORAL, 9 GM (4.5 GM,2 IN 1 D),ORAL
     Route: 048
     Dates: start: 20060601

REACTIONS (3)
  - INCONTINENCE [None]
  - POST PROCEDURAL COMPLICATION [None]
  - LOWER LIMB FRACTURE [None]
